FAERS Safety Report 16254781 (Version 1)
Quarter: 2019Q2

REPORT INFORMATION
  Report Type: Spontaneous
  Country: US (occurrence: US)
  Receive Date: 20190430
  Receipt Date: 20190430
  Transmission Date: 20190711
  Serious: No
  Sender: FDA-Public Use
  Company Number: US-ELI_LILLY_AND_COMPANY-US201904008110

PATIENT

DRUGS (1)
  1. TALTZ [Suspect]
     Active Substance: IXEKIZUMAB
     Indication: PRODUCT USED FOR UNKNOWN INDICATION
     Dosage: 80 MG, UNKNOWN
     Route: 065
     Dates: start: 20190329

REACTIONS (3)
  - Rash [Unknown]
  - Pyrexia [Unknown]
  - Injection site erythema [Unknown]

NARRATIVE: CASE EVENT DATE: 20190408
